FAERS Safety Report 19968028 (Version 1)
Quarter: 2021Q4

REPORT INFORMATION
  Report Type: Spontaneous
  Country: US (occurrence: US)
  Receive Date: 20211019
  Receipt Date: 20211019
  Transmission Date: 20220304
  Serious: No
  Sender: FDA-Public Use
  Company Number: US-ORGANON-O2110USA001275

PATIENT
  Age: 101 Year
  Sex: Male

DRUGS (2)
  1. REMERON [Suspect]
     Active Substance: MIRTAZAPINE
     Dosage: UNK
     Route: 048
  2. MIRTAZAPINE [Suspect]
     Active Substance: MIRTAZAPINE
     Indication: Antidepressant therapy
     Dosage: UNK
     Route: 048
     Dates: start: 202107

REACTIONS (2)
  - Paranoia [Unknown]
  - Feeling abnormal [Unknown]

NARRATIVE: CASE EVENT DATE: 20210701
